FAERS Safety Report 15277687 (Version 1)
Quarter: 2018Q4

REPORT INFORMATION
  Report Type: Spontaneous
  Country: CN (occurrence: CN)
  Receive Date: 20180814
  Receipt Date: 20180814
  Transmission Date: 20190204
  Serious: Yes (Other)
  Sender: FDA-Public Use
  Company Number: CN-VALIDUS PHARMACEUTICALS LLC-CN-2018VAL000881

PATIENT

DRUGS (3)
  1. DISODIUM HYDROGENORTHOPHOSPHATE [Suspect]
     Active Substance: SODIUM PHOSPHATE, DIBASIC
     Indication: HYPOPHOSPHATAEMIC OSTEOMALACIA
     Dosage: UNK
     Route: 048
  2. CALCITRIOL. [Suspect]
     Active Substance: CALCITRIOL
     Indication: HYPOPHOSPHATAEMIC OSTEOMALACIA
     Dosage: 10-50 NG/KG/D
     Route: 048
  3. SODIUM DIHYDROGEN PHOSPHATE [Suspect]
     Active Substance: SODIUM PHOSPHATE
     Indication: HYPOPHOSPHATAEMIC OSTEOMALACIA
     Dosage: UNK
     Route: 048

REACTIONS (2)
  - Hyperparathyroidism [Unknown]
  - Nephrolithiasis [Unknown]
